FAERS Safety Report 7433881-8 (Version None)
Quarter: 2011Q2

REPORT INFORMATION
  Report Type: 
  Country: None (occurrence: None)
  Receive Date: 20110425
  Receipt Date: 20080825
  Transmission Date: 20111010
  Serious: No
  Sender: FDA-Public Use
  Company Number: 2008BI018240

PATIENT
  Age: 45 Year
  Sex: Female

DRUGS (4)
  1. TYSABRI [Suspect]
     Indication: MULTIPLE SCLEROSIS
     Route: 042
     Dates: start: 20080107, end: 20080303
  2. AVONEX [Concomitant]
     Indication: MULTIPLE SCLEROSIS
     Route: 030
     Dates: start: 20080101
  3. TYSABRI [Suspect]
     Route: 042
     Dates: start: 20081103
  4. AVONEX [Concomitant]
     Route: 030
     Dates: start: 20010301

REACTIONS (5)
  - ANTIBODY TEST ABNORMAL [None]
  - PNEUMONIA [None]
  - SELECTIVE IGG SUBCLASS DEFICIENCY [None]
  - PYREXIA [None]
  - UPPER RESPIRATORY TRACT INFECTION [None]
